FAERS Safety Report 4717113-7 (Version None)
Quarter: 2005Q3

REPORT INFORMATION
  Report Type: 
  Country: None (occurrence: None)
  Receive Date: 20050719
  Receipt Date: 20041221
  Transmission Date: 20060218
  Serious: Yes (Hospitalization, Other)
  Sender: FDA-Public Use
  Company Number: US-ABBOTT-04P-163-0284710-00

PATIENT
  Sex: Male
  Weight: 78.996 kg

DRUGS (5)
  1. HUMIRA [Suspect]
     Indication: RHEUMATOID ARTHRITIS
     Route: 058
     Dates: start: 20040801
  2. COUMADIN [Concomitant]
     Indication: ANTICOAGULANT THERAPY
     Route: 048
  3. PYRIDOXINE HYDROCHLORIDE [Concomitant]
     Indication: RHEUMATOID ARTHRITIS
     Route: 048
     Dates: start: 20030801
  4. ISONIAZID [Concomitant]
     Indication: RHEUMATOID ARTHRITIS
     Route: 048
     Dates: start: 20030801
  5. ALPRAZOLAM [Concomitant]
     Indication: EMOTIONAL DISTRESS
     Route: 048
     Dates: start: 20020101

REACTIONS (6)
  - CEREBROVASCULAR ACCIDENT [None]
  - CHEST DISCOMFORT [None]
  - DYSPNOEA [None]
  - HEMIPARESIS [None]
  - HYPOAESTHESIA [None]
  - MUSCULOSKELETAL DISCOMFORT [None]
